FAERS Safety Report 10875181 (Version 3)
Quarter: 2015Q2

REPORT INFORMATION
  Report Type: Spontaneous
  Country: US (occurrence: US)
  Receive Date: 20150227
  Receipt Date: 20150422
  Transmission Date: 20150821
  Serious: Yes (Other)
  Sender: FDA-Public Use
  Company Number: US-UNITED THERAPEUTICS-UNT-2015-000843

PATIENT
  Age: 75 Year
  Sex: Female
  Weight: 48.25 kg

DRUGS (5)
  1. LETAIRIS [Concomitant]
     Active Substance: AMBRISENTAN
     Indication: PRODUCT USED FOR UNKNOWN INDICATION
  2. REMODULIN [Suspect]
     Active Substance: TREPROSTINIL
     Dosage: 0.090 ?G/KG, CONTINUING
     Route: 058
  3. REMODULIN [Suspect]
     Active Substance: TREPROSTINIL
     Dosage: UNK
  4. REMODULIN [Suspect]
     Active Substance: TREPROSTINIL
     Dosage: UNK
  5. REMODULIN [Suspect]
     Active Substance: TREPROSTINIL
     Indication: PULMONARY ARTERIAL HYPERTENSION
     Dosage: 0.090 ?G/KG,CONTINUING
     Route: 058
     Dates: start: 20081220

REACTIONS (7)
  - Vomiting [Unknown]
  - Surgery [Unknown]
  - Drug dose omission [Unknown]
  - Weight decreased [Unknown]
  - Malaise [Unknown]
  - Clostridium difficile infection [Unknown]
  - Influenza [Unknown]

NARRATIVE: CASE EVENT DATE: 201501
